FAERS Safety Report 10039597 (Version 3)
Quarter: 2014Q2

REPORT INFORMATION
  Report Type: Spontaneous
  Country: JP (occurrence: JP)
  Receive Date: 20140326
  Receipt Date: 20140519
  Transmission Date: 20141212
  Serious: Yes (Other)
  Sender: FDA-Public Use
  Company Number: JP-OTSUKA-JP-2014-12480

PATIENT
  Age: 21 Year
  Sex: Female

DRUGS (1)
  1. BUSULFEX [Suspect]
     Indication: STEM CELL TRANSPLANT
     Dosage: 6.6 MG/KG, UNKNOWN
     Route: 041

REACTIONS (2)
  - Cystitis haemorrhagic [Recovering/Resolving]
  - BK virus infection [Recovering/Resolving]
